FAERS Safety Report 5019829-4 (Version None)
Quarter: 2006Q2

REPORT INFORMATION
  Report Type: 
  Country: None (occurrence: None)
  Receive Date: 20060607
  Receipt Date: 20060530
  Transmission Date: 20061013
  Serious: Yes (Death)
  Sender: FDA-Public Use
  Company Number: JP-NOVOPROD-253771

PATIENT
  Sex: Male
  Weight: 1 kg

DRUGS (6)
  1. NOVOSEVEN [Suspect]
     Indication: HEPATIC HAEMORRHAGE
     Dosage: 0.4 MG, TID
     Dates: start: 20060523, end: 20060524
  2. SOLU-CORTEF [Concomitant]
     Dosage: 260 MG, UNK
     Route: 042
     Dates: start: 20060523, end: 20060524
  3. MORPHINE [Concomitant]
     Dosage: 80 UG, UNK
     Dates: start: 20060522, end: 20060524
  4. INOVAN [Concomitant]
     Dosage: 1.3 MG, UNK
     Dates: start: 20060522, end: 20060524
  5. DOBUTREX [Concomitant]
     Dosage: 3 MG, UNK
     Dates: start: 20060522, end: 20060524
  6. DORMICUM                           /00634101/ [Concomitant]
     Dosage: 3 MG, UNK
     Dates: start: 20060523, end: 20060524

REACTIONS (5)
  - ACIDOSIS [None]
  - DRUG INEFFECTIVE [None]
  - MULTI-ORGAN FAILURE [None]
  - RESPIRATORY FAILURE [None]
  - SHOCK HAEMORRHAGIC [None]
